FAERS Safety Report 5119997-X (Version None)
Quarter: 2006Q3

REPORT INFORMATION
  Report Type: 
  Country: None (occurrence: None)
  Receive Date: 20060929
  Receipt Date: 20060920
  Transmission Date: 20061208
  Serious: Yes (Hospitalization, Other)
  Sender: FDA-Public Use
  Company Number: T06-JPN-03119-01

PATIENT
  Age: 63 Year
  Sex: Male
  Weight: 72.5 kg

DRUGS (5)
  1. MEMANTINE HCL [Suspect]
     Indication: DEMENTIA ALZHEIMER'S TYPE
     Dosage: 20 MG QD PO
     Route: 048
     Dates: start: 20060513, end: 20060727
  2. MEMANTINE HCL [Suspect]
     Indication: DEMENTIA ALZHEIMER'S TYPE
     Dates: start: 20060415, end: 20060512
  3. AMLODIPINE BESYLATE [Concomitant]
  4. TELMISARTAN [Concomitant]
  5. CARBAZOCHROME SODIUM SULFONATE [Concomitant]

REACTIONS (2)
  - RETINAL DETACHMENT [None]
  - VITREOUS HAEMORRHAGE [None]
